FAERS Safety Report 4861777-4 (Version None)
Quarter: 2005Q4

REPORT INFORMATION
  Report Type: 
  Country: None (occurrence: None)
  Receive Date: 20051220
  Receipt Date: 20051005
  Transmission Date: 20060501
  Serious: Yes (Hospitalization)
  Sender: FDA-Public Use
  Company Number: US-MERCK-0510USA05346

PATIENT
  Age: 52 Year
  Sex: Female
  Weight: 59 kg

DRUGS (5)
  1. VIOXX [Suspect]
     Indication: BACK PAIN
     Route: 048
     Dates: start: 20040815, end: 20040916
  2. VIOXX [Suspect]
     Route: 048
     Dates: start: 20010228, end: 20010828
  3. VIOXX [Suspect]
     Indication: PAIN IN JAW
     Route: 048
     Dates: start: 20040815, end: 20040916
  4. VIOXX [Suspect]
     Route: 048
     Dates: start: 20010228, end: 20010828
  5. [THERAPY UNSPECIFIED] [Concomitant]
     Route: 065

REACTIONS (2)
  - PARATHYROID DISORDER [None]
  - THROMBOSIS [None]
